FAERS Safety Report 4942979-5 (Version None)
Quarter: 2006Q1

REPORT INFORMATION
  Report Type: 
  Country: None (occurrence: None)
  Receive Date: 20060314
  Receipt Date: 20060307
  Transmission Date: 20060701
  Serious: Yes (Other)
  Sender: FDA-Public Use
  Company Number: US-GLAXOSMITHKLINE-A0596507A

PATIENT
  Age: 86 Year
  Sex: Male

DRUGS (4)
  1. ADVAIR DISKUS 100/50 [Suspect]
     Indication: ASTHMA
     Route: 055
     Dates: start: 20040301
  2. SEREVENT [Suspect]
     Indication: ASTHMA
     Dosage: 50MCG TWICE PER DAY
     Route: 055
     Dates: start: 20050301, end: 20050401
  3. NEXIUM [Concomitant]
  4. COZAAR [Concomitant]

REACTIONS (4)
  - DRUG INEFFECTIVE [None]
  - EYE DISCHARGE [None]
  - EYE INFECTION [None]
  - VISUAL ACUITY REDUCED [None]
